FAERS Safety Report 6830184-7 (Version None)
Quarter: 2010Q3

REPORT INFORMATION
  Report Type: 
  Country: None (occurrence: None)
  Receive Date: 20100711
  Receipt Date: 20100611
  Transmission Date: 20110219
  Serious: No
  Sender: FDA-Public Use
  Company Number: US-ALLERGAN-1007684US

PATIENT
  Sex: Female

DRUGS (5)
  1. LATISSE [Suspect]
     Indication: GROWTH OF EYELASHES
     Dosage: UNK
  2. DICLOFENAC SODIUM [Concomitant]
  3. VITAMIN C                          /00008001/ [Concomitant]
  4. VITAMIN E [Concomitant]
  5. FISH OIL [Concomitant]

REACTIONS (3)
  - EYE DISORDER [None]
  - EYE PRURITUS [None]
  - OCULAR HYPERAEMIA [None]
